FAERS Safety Report 11663534 (Version 3)
Quarter: 2015Q4

REPORT INFORMATION
  Report Type: Spontaneous
  Country: US (occurrence: US)
  Receive Date: 20151027
  Receipt Date: 20151125
  Transmission Date: 20160304
  Serious: Yes (Other)
  Sender: FDA-Public Use
  Company Number: US-PFIZER INC-2015344348

PATIENT
  Age: 61 Year
  Sex: Male

DRUGS (2)
  1. OXYCODONE [Concomitant]
     Active Substance: OXYCODONE
     Indication: PAIN
     Dosage: 10 MG, UNK
  2. SUTENT [Suspect]
     Active Substance: SUNITINIB MALATE
     Indication: RENAL CANCER
     Dosage: 50 MG, CYCLIC (TAKE 1 CAPSULE BY MOUTH DAILY FOR 4 WEEKS ON AND 2 WEEK OFF)
     Route: 048
     Dates: start: 201509

REACTIONS (8)
  - Tooth infection [Recovered/Resolved]
  - Back pain [Recovering/Resolving]
  - Mobility decreased [Unknown]
  - Kidney infection [Unknown]
  - Stomatitis [Not Recovered/Not Resolved]
  - Dental caries [Recovered/Resolved]
  - Hypophagia [Unknown]
  - Oral pain [Not Recovered/Not Resolved]

NARRATIVE: CASE EVENT DATE: 20151009
